FAERS Safety Report 25604617 (Version 4)
Quarter: 2025Q3

REPORT INFORMATION
  Report Type: Report from Study
  Country: CA (occurrence: CA)
  Receive Date: 20250725
  Receipt Date: 20250811
  Transmission Date: 20251020
  Serious: Yes (Death, Hospitalization, Other)
  Sender: TAKEDA
  Company Number: CA-TAKEDA-2025TUS066356

PATIENT
  Age: 75 Year
  Sex: Female

DRUGS (18)
  1. VEDOLIZUMAB [Suspect]
     Active Substance: VEDOLIZUMAB
     Indication: Immune-mediated enterocolitis
  2. VEDOLIZUMAB [Suspect]
     Active Substance: VEDOLIZUMAB
  3. VEDOLIZUMAB [Suspect]
     Active Substance: VEDOLIZUMAB
  4. SYNTHROID [Concomitant]
     Active Substance: LEVOTHYROXINE SODIUM
  5. DEXAMETHASONE [Concomitant]
     Active Substance: DEXAMETHASONE
  6. PANTOPRAZOLE [Concomitant]
     Active Substance: PANTOPRAZOLE
  7. RANITIDINE [Concomitant]
     Active Substance: RANITIDINE
  8. Prochlorazine [Concomitant]
  9. CIPRALEX [Concomitant]
     Active Substance: ESCITALOPRAM OXALATE
  10. AMLODIPINE [Concomitant]
     Active Substance: AMLODIPINE BESYLATE
  11. TRAVOPROST [Concomitant]
     Active Substance: TRAVOPROST
  12. VITAMIN D [Concomitant]
     Active Substance: VITAMIN D NOS
  13. CALCIUM [Concomitant]
     Active Substance: CALCIUM
  14. FOLIC ACID [Concomitant]
     Active Substance: FOLIC ACID
  15. Iron + vitamin c [Concomitant]
  16. TYLENOL [Concomitant]
     Active Substance: ACETAMINOPHEN
  17. MORPHINE [Concomitant]
     Active Substance: MORPHINE
  18. B12 [Concomitant]

REACTIONS (3)
  - Death [Fatal]
  - Pulmonary embolism [Unknown]
  - Off label use [Unknown]

NARRATIVE: CASE EVENT DATE: 20240711
